FAERS Safety Report 17520240 (Version 1)
Quarter: 2020Q1

REPORT INFORMATION
  Report Type: Spontaneous
  Country: US (occurrence: US)
  Receive Date: 20200302
  Receipt Date: 20200302
  Transmission Date: 20200409
  Serious: No
  Sender: FDA-Public Use
  Company Number: None

PATIENT
  Age: 63 Year
  Sex: Female

DRUGS (1)
  1. OCTREOTIDE ACE INJ 1000MCG/ML 5ML [Suspect]
     Active Substance: OCTREOTIDE ACETATE
     Indication: NEUROENDOCRINE TUMOUR
     Route: 058
     Dates: start: 202001

REACTIONS (4)
  - Diarrhoea [None]
  - Product dispensing issue [None]
  - Abnormal faeces [None]
  - Therapy cessation [None]

NARRATIVE: CASE EVENT DATE: 20200302
